FAERS Safety Report 7869280-4 (Version None)
Quarter: 2011Q4

REPORT INFORMATION
  Report Type: 
  Country: None (occurrence: None)
  Receive Date: 20111028
  Receipt Date: 20101229
  Transmission Date: 20120403
  Serious: No
  Sender: FDA-Public Use
  Company Number: US-AMGEN-USASP2010012223

PATIENT
  Age: 50 Year
  Sex: Female
  Weight: 70.295 kg

DRUGS (6)
  1. ENBREL [Suspect]
     Indication: PRODUCT USED FOR UNKNOWN INDICATION
     Dosage: 50 MG, QWK
  2. SYNTHROID [Concomitant]
     Dosage: 75 MG, UNK
  3. FLUOXETINE HCL [Concomitant]
     Dosage: 10 MG, UNK
  4. VITAMIN C                          /00008001/ [Concomitant]
     Dosage: 1000 MG, UNK
  5. CALCIUM [Concomitant]
     Dosage: 500 MG, UNK
  6. MULTIVITAMIN                       /00097801/ [Concomitant]

REACTIONS (1)
  - PSORIASIS [None]
